FAERS Safety Report 5366135-4 (Version None)
Quarter: 2007Q2

REPORT INFORMATION
  Report Type: 
  Country: None (occurrence: None)
  Receive Date: 20070530
  Receipt Date: 20070207
  Transmission Date: 20071010
  Serious: No
  Sender: FDA-Public Use
  Company Number: 2005PV002148

PATIENT
  Age: 62 Year
  Sex: Female
  Weight: 122.4712 kg

DRUGS (6)
  1. BYETTA [Suspect]
     Indication: DIABETES MELLITUS NON-INSULIN-DEPENDENT
     Dosage: 5 MCG;BID;SC   5 MCG;BID;SC  10 MCG;BID;SC
     Route: 058
     Dates: start: 20051001, end: 20060201
  2. BYETTA [Suspect]
     Indication: DIABETES MELLITUS NON-INSULIN-DEPENDENT
     Dosage: 5 MCG;BID;SC   5 MCG;BID;SC  10 MCG;BID;SC
     Route: 058
     Dates: start: 20060401, end: 20060701
  3. BYETTA [Suspect]
     Indication: DIABETES MELLITUS NON-INSULIN-DEPENDENT
     Dosage: 5 MCG;BID;SC   5 MCG;BID;SC  10 MCG;BID;SC
     Route: 058
     Dates: start: 20050910
  4. GLUCOTROL [Concomitant]
  5. AVANDIA [Concomitant]
  6. HUMULIN N [Concomitant]

REACTIONS (5)
  - BLOOD GLUCOSE INCREASED [None]
  - DRUG INEFFECTIVE [None]
  - NAUSEA [None]
  - WEIGHT DECREASED [None]
  - WEIGHT INCREASED [None]
